FAERS Safety Report 5296494-2 (Version None)
Quarter: 2007Q2

REPORT INFORMATION
  Report Type: 
  Country: None (occurrence: None)
  Receive Date: 20070413
  Receipt Date: 20070405
  Transmission Date: 20071010
  Serious: Yes (Other)
  Sender: FDA-Public Use
  Company Number: US-PFIZER INC-2006065848

PATIENT
  Sex: Male
  Weight: 89.8 kg

DRUGS (1)
  1. CELEBREX [Suspect]
     Indication: ARTHRITIS
     Dates: start: 19990416, end: 20050101

REACTIONS (2)
  - CEREBROVASCULAR ACCIDENT [None]
  - HEART INJURY [None]
